FAERS Safety Report 5895369-5 (Version None)
Quarter: 2008Q3

REPORT INFORMATION
  Report Type: 
  Country: None (occurrence: None)
  Receive Date: 20080923
  Receipt Date: 20080923
  Transmission Date: 20090109
  Serious: Yes (Other)
  Sender: FDA-Public Use
  Company Number: None

PATIENT
  Age: 38 Year
  Sex: Female
  Weight: 104.3273 kg

DRUGS (1)
  1. CIPRO [Suspect]
     Indication: URINARY TRACT INFECTION
     Dosage: 500MG TWO TIMES DAILY PO
     Route: 048
     Dates: start: 20051227, end: 20060104

REACTIONS (8)
  - ABASIA [None]
  - ARTHRALGIA [None]
  - FALL [None]
  - MUSCULAR WEAKNESS [None]
  - MUSCULOSKELETAL PAIN [None]
  - PAIN IN EXTREMITY [None]
  - PETECHIAE [None]
  - TENDONITIS [None]
